FAERS Safety Report 8614773-5 (Version None)
Quarter: 2012Q3

REPORT INFORMATION
  Report Type: 
  Country: None (occurrence: None)
  Receive Date: 20120823
  Receipt Date: 20120814
  Transmission Date: 20120928
  Serious: Yes (Hospitalization, Disabling, Other)
  Sender: FDA-Public Use
  Company Number: US-009507513-2012SP017429

PATIENT

DRUGS (1)
  1. NUVARING [Suspect]
     Indication: CONTRACEPTION
     Dosage: UNK
     Dates: start: 20100101, end: 20100401

REACTIONS (13)
  - JOINT INJURY [None]
  - PULMONARY EMBOLISM [None]
  - CYST [None]
  - HEADACHE [None]
  - ANXIETY [None]
  - COLON INJURY [None]
  - SIGMOIDOSCOPY [None]
  - DEPRESSION [None]
  - SURGERY [None]
  - TRANSIENT ISCHAEMIC ATTACK [None]
  - CEREBROVASCULAR ACCIDENT [None]
  - BLOOD DISORDER [None]
  - DEEP VEIN THROMBOSIS [None]
